FAERS Safety Report 7682918-X (Version None)
Quarter: 2011Q3

REPORT INFORMATION
  Report Type: 
  Country: None (occurrence: None)
  Receive Date: 20110815
  Receipt Date: 20110804
  Transmission Date: 20111222
  Serious: Yes (Hospitalization)
  Sender: FDA-Public Use
  Company Number: IT-JNJFOC-20110806071

PATIENT
  Sex: Female

DRUGS (7)
  1. MULTAQ [Concomitant]
  2. IRBESARTAN AND HYDROCHLOROTHIAZIDE [Concomitant]
     Indication: HYPERTENSION
  3. PATROL [Suspect]
     Indication: OSTEOARTHRITIS
     Route: 065
     Dates: start: 20110720, end: 20110801
  4. KETOPROFEN [Suspect]
     Indication: OSTEOARTHRITIS
     Route: 048
     Dates: start: 20110709, end: 20110719
  5. CACIT NOS [Concomitant]
  6. ATORVASTATIN CALCIUM [Concomitant]
  7. COUMADIN [Concomitant]
     Indication: ATRIAL FIBRILLATION
     Dates: start: 19990101

REACTIONS (1)
  - GASTRITIS [None]
